FAERS Safety Report 4508913-7 (Version None)
Quarter: 2004Q4

REPORT INFORMATION
  Report Type: 
  Country: None (occurrence: None)
  Receive Date: 20041123
  Receipt Date: 20041116
  Transmission Date: 20050328
  Serious: Yes (Hospitalization)
  Sender: FDA-Public Use
  Company Number: FRPFM-E-20040124

PATIENT
  Age: 46 Year
  Sex: Female

DRUGS (3)
  1. NAVELBINE [Suspect]
     Dosage: 50MG PER DAY
     Route: 042
     Dates: start: 20040111, end: 20040114
  2. TRILEPTAL [Concomitant]
  3. MITOMYCIN [Concomitant]

REACTIONS (3)
  - EXTRAVASATION [None]
  - SKIN BURNING SENSATION [None]
  - SKIN NECROSIS [None]
